FAERS Safety Report 18168162 (Version 1)
Quarter: 2020Q3

REPORT INFORMATION
  Report Type: Spontaneous
  Country: FR (occurrence: FR)
  Receive Date: 20200819
  Receipt Date: 20200819
  Transmission Date: 20201103
  Serious: Yes (Other)
  Sender: FDA-Public Use
  Company Number: FR-LUPIN PHARMACEUTICALS INC.-2020-04682

PATIENT
  Age: 63 Year
  Sex: Female

DRUGS (1)
  1. IMATINIB MESYLATE. [Suspect]
     Active Substance: IMATINIB MESYLATE
     Indication: ADJUVANT THERAPY
     Dosage: 400 MILLIGRAM, QD
     Route: 065

REACTIONS (1)
  - Bone marrow oedema [Recovered/Resolved]
